FAERS Safety Report 7070452-X (Version None)
Quarter: 2010Q4

REPORT INFORMATION
  Report Type: 
  Country: None (occurrence: None)
  Receive Date: 20101028
  Receipt Date: 20101028
  Transmission Date: 20110411
  Serious: No
  Sender: FDA-Public Use
  Company Number: None

PATIENT

DRUGS (1)
  1. SIMVASTATIN [Suspect]
     Indication: BLOOD CHOLESTEROL INCREASED
     Dosage: 1 ONCE A DAY
     Dates: start: 20100530, end: 20100628

REACTIONS (2)
  - SKIN DISCOLOURATION [None]
  - VASCULAR RUPTURE [None]
